FAERS Safety Report 5060051-3 (Version None)
Quarter: 2006Q3

REPORT INFORMATION
  Report Type: 
  Country: None (occurrence: None)
  Receive Date: 20060719
  Receipt Date: 20060710
  Transmission Date: 20061208
  Serious: No
  Sender: FDA-Public Use
  Company Number: 06-115

PATIENT
  Age: 74 Year
  Sex: Female

DRUGS (9)
  1. METFORMIN HYDROCHLORIDE [Suspect]
     Indication: DIABETES MELLITUS NON-INSULIN-DEPENDENT
     Dosage: ONE 500 MG TABLET DAILY
  2. ATACAND [Concomitant]
  3. COREG [Concomitant]
  4. LANOXIN [Concomitant]
  5. GLIPZIDE [Concomitant]
  6. NORVOX [Concomitant]
  7. SYNTHROID [Concomitant]
  8. THYRICIMIDE [Concomitant]
  9. GLUCOTROL XL [Concomitant]

REACTIONS (1)
  - STOOL ANALYSIS ABNORMAL [None]
